FAERS Safety Report 7747934-8 (Version None)
Quarter: 2011Q3

REPORT INFORMATION
  Report Type: 
  Country: None (occurrence: None)
  Receive Date: 20110913
  Receipt Date: 20110708
  Transmission Date: 20111222
  Serious: No
  Sender: FDA-Public Use
  Company Number: US-ALLERGAN-1109256US

PATIENT
  Age: 72 Year
  Sex: Female

DRUGS (1)
  1. LATISSE [Suspect]
     Indication: GROWTH OF EYELASHES
     Dosage: 1 GTT, QHS
     Route: 061
     Dates: start: 20110422, end: 20110629

REACTIONS (2)
  - SKIN DISCOLOURATION [None]
  - ERYTHEMA [None]
